FAERS Safety Report 9257402 (Version 2)
Quarter: 2013Q3

REPORT INFORMATION
  Report Type: Report from Study
  Country: FR (occurrence: FR)
  Receive Date: 20130426
  Receipt Date: 20130708
  Transmission Date: 20140515
  Serious: Yes (Hospitalization)
  Sender: FDA-Public Use
  Company Number: FR-ROCHE-1200658

PATIENT
  Age: 47 Year
  Sex: Female
  Weight: 91 kg

DRUGS (18)
  1. ROACTEMRA [Suspect]
     Indication: RHEUMATOID ARTHRITIS
     Dosage: CYCLICAL, MONTHLY : 720 MG
     Route: 041
     Dates: start: 20120301
  2. ROACTEMRA [Suspect]
     Route: 042
     Dates: start: 20120524
  3. ROACTEMRA [Suspect]
     Route: 042
     Dates: start: 20120424
  4. ROACTEMRA [Suspect]
     Route: 042
     Dates: start: 20120329
  5. ROACTEMRA [Suspect]
     Route: 042
     Dates: start: 20120920
  6. ROACTEMRA [Suspect]
     Route: 042
     Dates: start: 20121017
  7. ROACTEMRA [Suspect]
     Route: 042
     Dates: end: 20121115
  8. ROACTEMRA [Suspect]
     Route: 042
     Dates: start: 20121212
  9. ROACTEMRA [Suspect]
     Route: 042
     Dates: start: 20121212
  10. ROACTEMRA [Suspect]
     Route: 042
     Dates: start: 20130110
  11. ROACTEMRA [Suspect]
     Route: 042
     Dates: start: 20130207
  12. CORTANCYL [Suspect]
     Indication: RHEUMATOID ARTHRITIS
     Route: 048
     Dates: start: 2011
  13. METHOTREXATE [Concomitant]
     Route: 065
  14. INEXIUM [Concomitant]
     Dosage: 40 (1/DAY)
     Route: 065
  15. SULFARLEM S25 [Concomitant]
     Route: 065
  16. BIPERIDYS [Concomitant]
     Route: 065
  17. CALCIDOSE [Concomitant]
  18. HYDROCORTISONE [Concomitant]
     Route: 065

REACTIONS (5)
  - Sepsis [Recovered/Resolved]
  - Gastroenteritis viral [Recovered/Resolved]
  - Lymphangitis [Recovered/Resolved]
  - Venous thrombosis limb [Recovered/Resolved]
  - Hepatitis acute [Unknown]
